FAERS Safety Report 22208134 (Version 1)
Quarter: 2023Q2

REPORT INFORMATION
  Report Type: Spontaneous
  Country: PL (occurrence: PL)
  Receive Date: 20230413
  Receipt Date: 20230413
  Transmission Date: 20230722
  Serious: Yes (Hospitalization, Other)
  Sender: FDA-Public Use
  Company Number: PL-002147023-NVSC2023PL062748

PATIENT
  Age: 49 Year
  Sex: Male

DRUGS (25)
  1. FUROSEMIDE [Suspect]
     Active Substance: FUROSEMIDE
     Indication: Product used for unknown indication
     Dosage: 40 MG, PRN
     Route: 065
  2. FUROSEMIDE [Suspect]
     Active Substance: FUROSEMIDE
     Dosage: 40 MG, QD
     Route: 065
     Dates: start: 202012
  3. POTASSIUM CHLORIDE [Suspect]
     Active Substance: POTASSIUM CHLORIDE
     Indication: Product used for unknown indication
     Dosage: UNK, TID
     Route: 065
     Dates: start: 202012
  4. POTASSIUM CHLORIDE [Suspect]
     Active Substance: POTASSIUM CHLORIDE
     Dosage: UNK, QD (1-0-0)
     Route: 065
     Dates: start: 20220317
  5. POTASSIUM CHLORIDE [Suspect]
     Active Substance: POTASSIUM CHLORIDE
     Dosage: UNK, BID
     Route: 065
     Dates: start: 202104
  6. BISOPROLOL [Suspect]
     Active Substance: BISOPROLOL
     Indication: Product used for unknown indication
     Dosage: 1.25 MG, QD (1-0-0)
     Route: 065
  7. BISOPROLOL [Suspect]
     Active Substance: BISOPROLOL
     Dosage: 1.25 MG, QD
     Route: 065
     Dates: start: 202012
  8. BISOPROLOL [Suspect]
     Active Substance: BISOPROLOL
     Dosage: 1.25 MG, QD (1-0-0)
     Route: 065
     Dates: start: 20220317
  9. SACUBITRIL\VALSARTAN [Suspect]
     Active Substance: SACUBITRIL\VALSARTAN
     Indication: Product used for unknown indication
     Dosage: UNK BID (97/103 MG)
     Route: 065
  10. SACUBITRIL\VALSARTAN [Suspect]
     Active Substance: SACUBITRIL\VALSARTAN
     Dosage: UNK BID (49/51 MG)
     Route: 065
     Dates: start: 202104
  11. SACUBITRIL\VALSARTAN [Suspect]
     Active Substance: SACUBITRIL\VALSARTAN
     Dosage: UNK BID (97/103 MG)
     Route: 065
     Dates: start: 20220317
  12. TORSEMIDE [Suspect]
     Active Substance: TORSEMIDE
     Indication: Product used for unknown indication
     Dosage: 5 MG, QD (1-0-0)
     Route: 065
  13. TORSEMIDE [Suspect]
     Active Substance: TORSEMIDE
     Dosage: 10 MG, QD (1-0-0)
     Route: 065
     Dates: start: 20220317
  14. TORSEMIDE [Suspect]
     Active Substance: TORSEMIDE
     Dosage: 20 MG, QD (0-1-0)
     Route: 065
     Dates: start: 202012
  15. PANTOPRAZOLE [Suspect]
     Active Substance: PANTOPRAZOLE
     Indication: Product used for unknown indication
     Dosage: 20 MG, QD (1-0-0)
     Route: 065
     Dates: start: 202012
  16. DASATINIB [Suspect]
     Active Substance: DASATINIB
     Indication: Chronic myeloid leukaemia
     Dosage: 50 MG, QD (1-0-0)
     Route: 065
  17. DASATINIB [Suspect]
     Active Substance: DASATINIB
     Dosage: 50 MG, QD (1-0-0)
     Route: 065
     Dates: start: 2017
  18. DAPAGLIFLOZIN [Suspect]
     Active Substance: DAPAGLIFLOZIN
     Indication: Product used for unknown indication
     Dosage: 10 MG, QD
     Route: 065
  19. DAPAGLIFLOZIN [Suspect]
     Active Substance: DAPAGLIFLOZIN
     Dosage: 10 MG, QD (1-0-0)
     Route: 065
     Dates: start: 20220317
  20. ROSUVASTATIN [Suspect]
     Active Substance: ROSUVASTATIN
     Indication: Hypercholesterolaemia
     Dosage: 10 MG, QD (1X1 (0-0-1)
     Route: 065
     Dates: start: 202012
  21. ROSUVASTATIN [Suspect]
     Active Substance: ROSUVASTATIN
     Dosage: 50 MG (0-0-1)
     Route: 065
     Dates: start: 202104
  22. ROSUVASTATIN [Suspect]
     Active Substance: ROSUVASTATIN
     Dosage: UNK, QD (0-0-1)
     Route: 065
     Dates: start: 20220317
  23. EPLERENONE [Suspect]
     Active Substance: EPLERENONE
     Indication: Product used for unknown indication
     Dosage: 50 MG, QD (0-1-0)
     Route: 065
  24. EPLERENONE [Suspect]
     Active Substance: EPLERENONE
     Dosage: 25 MG, QD (0-1-0)
     Route: 065
  25. PERINDOPRIL [Suspect]
     Active Substance: PERINDOPRIL
     Indication: Product used for unknown indication
     Dosage: 5 MG (0-0-1/2)
     Route: 065
     Dates: start: 202012

REACTIONS (22)
  - Dyspnoea [None]
  - Mitral valve incompetence [None]
  - Rales [None]
  - Cough [None]
  - Fatigue [None]
  - Atrial enlargement [None]
  - Tachypnoea [None]
  - Exercise tolerance decreased [None]
  - Oedema peripheral [None]
  - Cardiomyopathy [None]
  - Ventricular hypokinesia [None]
  - Dilated cardiomyopathy [None]
  - Tricuspid valve incompetence [None]
  - Ventricular tachycardia [None]
  - Ventricular enlargement [None]
  - Ejection fraction decreased [None]
  - Ill-defined disorder [None]
  - Left ventricular dysfunction [None]
  - Right ventricular dysfunction [None]
  - Dyspnoea exertional [None]
  - Aortic valve sclerosis [None]
  - Ventricular extrasystoles [None]

NARRATIVE: CASE EVENT DATE: 20201201
